FAERS Safety Report 16004066 (Version 2)
Quarter: 2019Q1

REPORT INFORMATION
  Report Type: Spontaneous
  Country: GB (occurrence: GB)
  Receive Date: 20190225
  Receipt Date: 20190226
  Transmission Date: 20190418
  Serious: Yes (Other)
  Sender: FDA-Public Use
  Company Number: GB-ACCORD-108649

PATIENT
  Age: 84 Year
  Sex: Female

DRUGS (9)
  1. CASSIA [Concomitant]
  2. LACTULOSE. [Concomitant]
     Active Substance: LACTULOSE
     Dosage: 3.1-3.7G/5ML
     Route: 048
  3. FOLIC ACID. [Concomitant]
     Active Substance: FOLIC ACID
  4. NITROFURANTOIN/NITROFURANTOIN SODIUM [Concomitant]
  5. SALBUTAMOL [Concomitant]
     Active Substance: ALBUTEROL
     Dosage: 5MG/2.5ML
  6. ATORVASTATIN/ATORVASTATIN CALCIUM [Suspect]
     Active Substance: ATORVASTATIN CALCIUM
     Indication: PROPHYLAXIS
     Dosage: COMMENCED ON 40MG THEN REDUCED TO 20MG
     Route: 048
     Dates: start: 20180503
  7. MEROPENEM. [Concomitant]
     Active Substance: MEROPENEM
     Dates: start: 20180702
  8. APIXABAN [Suspect]
     Active Substance: APIXABAN
     Indication: ATRIAL FIBRILLATION
     Route: 048
     Dates: start: 20180503, end: 20180719
  9. FERROUS FUMARATE [Concomitant]
     Active Substance: FERROUS FUMARATE

REACTIONS (4)
  - Blood alkaline phosphatase increased [Unknown]
  - Gamma-glutamyltransferase increased [Unknown]
  - Aspartate aminotransferase increased [Unknown]
  - Alanine aminotransferase increased [Unknown]

NARRATIVE: CASE EVENT DATE: 20180702
